FAERS Safety Report 6948513-2 (Version None)
Quarter: 2010Q3

REPORT INFORMATION
  Report Type: 
  Country: None (occurrence: None)
  Receive Date: 20100828
  Receipt Date: 20091116
  Transmission Date: 20110219
  Serious: No
  Sender: FDA-Public Use
  Company Number: US-ABBOTT-09P-163-0608891-00

PATIENT
  Sex: Female

DRUGS (4)
  1. NIASPAN [Suspect]
     Indication: PRODUCT USED FOR UNKNOWN INDICATION
     Dosage: ONCE EVERY NIGHT
     Route: 048
     Dates: start: 20091113, end: 20091116
  2. NIASPAN [Suspect]
     Dosage: ONCE EVERY NIGHT
     Route: 048
     Dates: start: 20091031, end: 20091113
  3. ASPIRIN [Concomitant]
     Indication: PRODUCT USED FOR UNKNOWN INDICATION
     Route: 048
  4. UNREPORTED DIABETES MEDICATIONS [Concomitant]
     Indication: DIABETES MELLITUS

REACTIONS (8)
  - CHILLS [None]
  - DYSGEUSIA [None]
  - FLUSHING [None]
  - ORAL DISORDER [None]
  - PARAESTHESIA [None]
  - SWOLLEN TONGUE [None]
  - THROMBOSIS [None]
  - TONGUE HAEMORRHAGE [None]
